FAERS Safety Report 9300698 (Version 1)
Quarter: 2013Q2

REPORT INFORMATION
  Report Type: Report from Study
  Country: CA (occurrence: CA)
  Receive Date: 20130521
  Receipt Date: 20130521
  Transmission Date: 20140414
  Serious: Yes (Other)
  Sender: FDA-Public Use
  Company Number: CA-JNJFOC-20130509879

PATIENT
  Age: 26 Year
  Sex: Female
  Weight: 53 kg

DRUGS (10)
  1. REMICADE [Suspect]
     Indication: CROHN^S DISEASE
     Route: 042
     Dates: start: 20130514
  2. REMICADE [Suspect]
     Indication: CROHN^S DISEASE
     Route: 042
     Dates: start: 20120327
  3. GRAVOL [Concomitant]
     Route: 042
  4. PENTASA [Concomitant]
     Dosage: 8 PILLS
     Route: 065
  5. B12 [Concomitant]
     Route: 065
  6. FOLIC ACID [Concomitant]
     Route: 065
  7. VIT D [Concomitant]
     Route: 065
  8. IRON [Concomitant]
     Route: 065
  9. BENADRYL [Concomitant]
     Indication: PREMEDICATION
     Route: 042
  10. SOLU CORTEF [Concomitant]
     Route: 042

REACTIONS (7)
  - Infusion related reaction [Recovered/Resolved]
  - Chest discomfort [Recovered/Resolved]
  - Dyspnoea [Recovered/Resolved]
  - Retching [Recovered/Resolved]
  - Erythema [Recovered/Resolved]
  - Dizziness [Recovered/Resolved]
  - Vomiting [Recovered/Resolved]
